FAERS Safety Report 6215777-2 (Version None)
Quarter: 2009Q2

REPORT INFORMATION
  Report Type: 
  Country: None (occurrence: None)
  Receive Date: 20090605
  Receipt Date: 20090529
  Transmission Date: 20091009
  Serious: Yes (Hospitalization, Other)
  Sender: FDA-Public Use
  Company Number: US-AMGEN-KDL349498

PATIENT
  Sex: Female
  Weight: 72.6 kg

DRUGS (8)
  1. PROCRIT [Suspect]
     Indication: ANAEMIA
     Dates: start: 20030101
  2. COUMADIN [Concomitant]
     Route: 048
  3. HYDRALAZINE HCL [Concomitant]
  4. DIGOXIN [Concomitant]
     Route: 048
  5. IMDUR [Concomitant]
     Route: 048
  6. FUROSEMIDE [Concomitant]
     Route: 048
  7. COREG [Concomitant]
     Route: 048
  8. IRON [Concomitant]

REACTIONS (8)
  - CARDIAC FAILURE CONGESTIVE [None]
  - CARDIOMYOPATHY [None]
  - CONSTIPATION [None]
  - DIZZINESS [None]
  - FATIGUE [None]
  - PALLOR [None]
  - PYREXIA [None]
  - RESPIRATION ABNORMAL [None]
